FAERS Safety Report 8006799-X (Version None)
Quarter: 2011Q4

REPORT INFORMATION
  Report Type: 
  Country: None (occurrence: None)
  Receive Date: 20111227
  Receipt Date: 20111219
  Transmission Date: 20120403
  Serious: Yes (Hospitalization)
  Sender: FDA-Public Use
  Company Number: PHEH2011US012079

PATIENT
  Sex: Male
  Weight: 88.435 kg

DRUGS (4)
  1. MAGNESIUM [Concomitant]
  2. CYCLOSPORINE [Concomitant]
  3. ANTI-THYMOCYTE GLOBULIN NOS [Concomitant]
  4. EXJADE [Suspect]
     Indication: APLASTIC ANAEMIA
     Dosage: 2000 MG, DAILY
     Route: 048
     Dates: start: 20110822

REACTIONS (3)
  - PAIN IN EXTREMITY [None]
  - HYPERGLYCAEMIA [None]
  - SERUM SICKNESS [None]
